FAERS Safety Report 22130433 (Version 1)
Quarter: 2023Q1

REPORT INFORMATION
  Report Type: Spontaneous
  Country: FR (occurrence: FR)
  Receive Date: 20230323
  Receipt Date: 20230323
  Transmission Date: 20230418
  Serious: Yes (Hospitalization)
  Sender: FDA-Public Use
  Company Number: None

PATIENT
  Age: 63 Year
  Sex: Female
  Weight: 59.6 kg

DRUGS (25)
  1. RITUXIMAB [Suspect]
     Active Substance: RITUXIMAB
     Indication: Non-Hodgkin^s lymphoma
     Dosage: 1 DF, SINGLE (C1)
     Dates: start: 20220504, end: 20220509
  2. METHOTREXATE SODIUM [Suspect]
     Active Substance: METHOTREXATE SODIUM
     Indication: Non-Hodgkin^s lymphoma
     Dosage: 1 DF, SINGLE (C1)
     Dates: start: 20220504, end: 20220509
  3. DOXORUBICIN HYDROCHLORIDE [Suspect]
     Active Substance: DOXORUBICIN HYDROCHLORIDE
     Indication: Non-Hodgkin^s lymphoma
     Dosage: 1 DF, SINGLE C1
     Dates: start: 20220504, end: 20220509
  4. VINCRISTINE SULFATE [Suspect]
     Active Substance: VINCRISTINE SULFATE
     Indication: Non-Hodgkin^s lymphoma
     Dosage: 1 DF, SINGLE (C1)
     Dates: start: 20220504, end: 20220509
  5. CYCLOPHOSPHAMIDE [Suspect]
     Active Substance: CYCLOPHOSPHAMIDE
     Indication: Non-Hodgkin^s lymphoma
     Dosage: 1 DF, SINGLE (C1)
     Dates: start: 20220504, end: 20220509
  6. PHLOROGLUCINOL [Concomitant]
     Active Substance: PHLOROGLUCINOL
     Dosage: UNK
  7. VALACYCLOVIR HYDROCHLORIDE [Concomitant]
     Active Substance: VALACYCLOVIR HYDROCHLORIDE
     Dosage: 2 DF, 1X/DAY (MORNING AND EVENING OVER THE DURATION OF TREATMENT)
  8. POLYETHYLENE GLYCOL 3350 [Concomitant]
     Active Substance: POLYETHYLENE GLYCOL 3350
     Indication: Constipation
     Dosage: UNK
  9. PRIMPERAN [Concomitant]
     Active Substance: METOCLOPRAMIDE HYDROCHLORIDE
     Indication: Nausea
     Dosage: 10 MG (1 TABLET MAXIMUM 3 TIMES DAILY)
  10. BACTRIM [Concomitant]
     Active Substance: SULFAMETHOXAZOLE\TRIMETHOPRIM
     Dosage: 1 DF (MONDAY, WEDNESDAY AND FRIDAY)
  11. SPAGULAX [Concomitant]
     Active Substance: HERBALS\PLANTAGO OVATA SEED
     Dosage: 3 DF, 1X/DAY
  12. TITANOREINE A LA LIDOCAINE [Concomitant]
     Dosage: UNK
  13. LORAZEPAM [Concomitant]
     Active Substance: LORAZEPAM
     Dosage: UNK
  14. ACETAMINOPHEN [Concomitant]
     Active Substance: ACETAMINOPHEN
     Indication: Pain
     Dosage: 1 G MAX IF PAIN
  15. FILGRASTIM [Concomitant]
     Active Substance: FILGRASTIM
     Dosage: 30 MU/0,5 ML
  16. DOSTINEX [Concomitant]
     Active Substance: CABERGOLINE
     Dosage: UNK
  17. FEMARA [Concomitant]
     Active Substance: LETROZOLE
     Dosage: UNK
  18. CHOLECALCIFEROL [Concomitant]
     Active Substance: CHOLECALCIFEROL
     Dosage: UNK
  19. SODIUM CITRATE\SODIUM LAURYL SULFOACETATE\SORBITOL [Concomitant]
     Active Substance: SODIUM CITRATE\SODIUM LAURYL SULFOACETATE\SORBITOL
     Dosage: UNK
  20. HEXETIDINE TEVA [Concomitant]
     Dosage: UNK
  21. MYFORTIC [Concomitant]
     Active Substance: MYCOPHENOLATE SODIUM
     Dosage: UNK
  22. REFRESH CELLUVISC [Concomitant]
     Active Substance: CARBOXYMETHYLCELLULOSE SODIUM
     Dosage: UNK
  23. FUNGIZONE [Concomitant]
     Active Substance: AMPHOTERICIN B
     Dosage: UNK
  24. ESOMEPRAZOLE [Concomitant]
     Active Substance: ESOMEPRAZOLE
     Dosage: 2 DF, 1X/DAY (MORNING AND EVENING OVER THE DURATION OF TREATMENT)
  25. TIMOLOL MALEATE\TRAVOPROST [Concomitant]
     Active Substance: TIMOLOL MALEATE\TRAVOPROST
     Dosage: UNK

REACTIONS (2)
  - Acute kidney injury [Recovered/Resolved]
  - Vomiting [Recovered/Resolved]

NARRATIVE: CASE EVENT DATE: 20220509
